FAERS Safety Report 21540404 (Version 1)
Quarter: 2022Q4

REPORT INFORMATION
  Report Type: Spontaneous
  Country: SE (occurrence: SE)
  Receive Date: 20221102
  Receipt Date: 20221102
  Transmission Date: 20230113
  Serious: Yes (Hospitalization)
  Sender: FDA-Public Use
  Company Number: None

PATIENT
  Age: 82 Year
  Sex: Male

DRUGS (6)
  1. SIMVASTATIN [Suspect]
     Active Substance: SIMVASTATIN
  2. METOPROLOL [Suspect]
     Active Substance: METOPROLOL
  3. MIRTAZAPINE [Suspect]
     Active Substance: MIRTAZAPINE
  4. DIGOXIN [Suspect]
     Active Substance: DIGOXIN
  5. ELIQUIS [Suspect]
     Active Substance: APIXABAN
  6. DONEPEZIL [Suspect]
     Active Substance: DONEPEZIL

REACTIONS (3)
  - Toxicity to various agents [Recovered/Resolved]
  - Confusional state [Recovered/Resolved]
  - Accidental overdose [Recovered/Resolved]

NARRATIVE: CASE EVENT DATE: 20220909
